FAERS Safety Report 7521808-X (Version None)
Quarter: 2011Q2

REPORT INFORMATION
  Report Type: 
  Country: None (occurrence: None)
  Receive Date: 20110603
  Receipt Date: 20090914
  Transmission Date: 20111010
  Serious: Yes (Hospitalization, Other)
  Sender: FDA-Public Use
  Company Number: US-BAYER-200933165NA

PATIENT
  Age: 57 Year
  Sex: Male
  Weight: 86 kg

DRUGS (23)
  1. TRASYLOL [Suspect]
     Indication: HIGH FREQUENCY ABLATION
  2. DOPAMINE HCL [Concomitant]
     Dosage: UNK
     Route: 042
     Dates: start: 20050523, end: 20050523
  3. ALBUMIN (HUMAN) [Concomitant]
     Dosage: UNK
     Route: 042
     Dates: start: 20050523
  4. GLUCOTROL [Concomitant]
     Dosage: 5 MG, BID
  5. INSULIN [Concomitant]
     Dosage: 30 UNITS, 100 UNITS
     Route: 042
     Dates: start: 20050523, end: 20050523
  6. CATAPRES [Concomitant]
     Dosage: 0.1 MG, BID
  7. ALDACTONE [Concomitant]
     Dosage: 25 MG, QD
  8. LASIX [Concomitant]
     Dosage: 40 MG, QD
     Route: 042
  9. GLUCOPHAGE [Concomitant]
     Dosage: 850 MG, QD
  10. DILANTIN [Concomitant]
     Dosage: 100 MG, TID
  11. ATENOLOL [Concomitant]
     Dosage: 25 MG, QD
  12. HEPARIN [Concomitant]
     Dosage: 10,000 UNITS,  5,000 UNITS
     Route: 042
     Dates: start: 20050523, end: 20050523
  13. TRASYLOL [Suspect]
     Indication: CORONARY ARTERY BYPASS
     Dosage: 200ML PRIME LOADING DOSE
     Route: 042
     Dates: start: 20050523
  14. METHADONE HCL [Concomitant]
     Dosage: 20 MG, BID
  15. AMIODARONE HCL [Concomitant]
     Dosage: 400 MG, QD
  16. SODIUM BICARBONATE [Concomitant]
     Dosage: 25 MILLIEQUIVALENTS
     Route: 042
     Dates: start: 20050523, end: 20050523
  17. POTASSIUM CHLORIDE [Concomitant]
     Dosage: 10 MILLIEQUIVALENTS
     Route: 042
     Dates: start: 20050523, end: 20050523
  18. NITROGLYCERIN [Concomitant]
     Dosage: UNK
     Route: 042
     Dates: start: 20050523, end: 20050523
  19. VERSED [Concomitant]
     Dosage: UNK
     Route: 042
     Dates: start: 20050523, end: 20050523
  20. LOVENOX [Concomitant]
     Dosage: 90 MG, BID
  21. TRASYLOL [Suspect]
     Indication: PHLEBECTOMY
  22. LOPRESSOR [Concomitant]
     Dosage: 25 MG, BID
  23. ACETYLSALICYLIC ACID SRT [Concomitant]
     Dosage: 325 MG, QD

REACTIONS (5)
  - UNEVALUABLE EVENT [None]
  - RENAL FAILURE ACUTE [None]
  - INJURY [None]
  - PAIN [None]
  - RENAL FAILURE [None]
